FAERS Safety Report 6800680-7 (Version None)
Quarter: 2010Q2

REPORT INFORMATION
  Report Type: 
  Country: None (occurrence: None)
  Receive Date: 20100629
  Receipt Date: 20100615
  Transmission Date: 20101027
  Serious: Yes (Other)
  Sender: FDA-Public Use
  Company Number: GB-RANBAXY-2010RR-35129

PATIENT
  Age: 68 Year
  Sex: Male

DRUGS (3)
  1. CARBILEV [Suspect]
  2. ROPINIROLE [Suspect]
     Indication: PARKINSON'S DISEASE
     Route: 065
  3. ENTACAPONE [Concomitant]

REACTIONS (10)
  - ATROPHY [None]
  - FALL [None]
  - FEELING COLD [None]
  - HALLUCINATION, VISUAL [None]
  - HYPERSEXUALITY [None]
  - MUSCULOSKELETAL STIFFNESS [None]
  - OBSESSIVE-COMPULSIVE DISORDER [None]
  - PARKINSON'S DISEASE [None]
  - PROGRESSIVE SUPRANUCLEAR PALSY [None]
  - STEREOTYPY [None]
